FAERS Safety Report 8049611 (Version 8)
Quarter: 2013Q4

REPORT INFORMATION
  Report Type: Spontaneous
  Country: US (occurrence: US)
  Receive Date: 20110722
  Receipt Date: 20131201
  Transmission Date: 20140711
  Serious: Yes (Hospitalization, Other)
  Sender: FDA-Public Use
  Company Number: US-ROCHE-772787

PATIENT
  Age: 33 Year
  Sex: Male
  Weight: 81.6 kg

DRUGS (1)
  1. ACCUTANE [Suspect]
     Indication: ACNE
     Route: 065
     Dates: start: 20020423, end: 20020927

REACTIONS (9)
  - Small intestinal obstruction [Unknown]
  - Inflammatory bowel disease [Not Recovered/Not Resolved]
  - Proctitis ulcerative [Unknown]
  - Crohn^s disease [Not Recovered/Not Resolved]
  - Arthritis [Not Recovered/Not Resolved]
  - Depression [Not Recovered/Not Resolved]
  - Suicidal ideation [Unknown]
  - Anal fissure [Unknown]
  - Sacroiliitis [Unknown]
